FAERS Safety Report 4493982-3 (Version None)
Quarter: 2004Q4

REPORT INFORMATION
  Report Type: 
  Country: None (occurrence: None)
  Receive Date: 20041103
  Receipt Date: 20041103
  Transmission Date: 20050328
  Serious: Yes (Life-Threatening, Other)
  Sender: FDA-Public Use
  Company Number: None

PATIENT
  Age: 34 Year
  Sex: Female
  Weight: 46.7205 kg

DRUGS (2)
  1. E95 ALLERGY TEST MERIDIAN VALLEY LABS RENTON, WA [Suspect]
  2. A95 ALLERGY TEST MERIDIAN VALLEY LABS RENTON, WA [Suspect]

REACTIONS (1)
  - LABORATORY TEST INTERFERENCE [None]
